FAERS Safety Report 21382866 (Version 2)
Quarter: 2023Q1

REPORT INFORMATION
  Report Type: Spontaneous
  Country: US (occurrence: US)
  Receive Date: 20220927
  Receipt Date: 20230112
  Transmission Date: 20230418
  Serious: No
  Sender: FDA-Public Use
  Company Number: US-SA-SAC20220923000616

PATIENT
  Age: 73 Year
  Sex: Female
  Weight: 66 kg

DRUGS (1)
  1. DUPIXENT [Suspect]
     Active Substance: DUPILUMAB
     Indication: Asthma
     Dosage: 300 MG, QOW
     Route: 058
     Dates: start: 201902

REACTIONS (5)
  - Carpal tunnel syndrome [Unknown]
  - Pain in extremity [Recovered/Resolved]
  - Burning sensation [Unknown]
  - Depression [Recovered/Resolved]
  - Injection site pain [Unknown]
